FAERS Safety Report 7928721-4 (Version None)
Quarter: 2011Q4

REPORT INFORMATION
  Report Type: 
  Country: None (occurrence: None)
  Receive Date: 20111118
  Receipt Date: 20111109
  Transmission Date: 20120403
  Serious: Yes (Death)
  Sender: FDA-Public Use
  Company Number: US-VERTEX PHARMACEUTICALS INC.-AE-2011-003331

PATIENT
  Sex: Male

DRUGS (4)
  1. PROCRIT [Concomitant]
     Dates: start: 20110919
  2. PEGASYS [Concomitant]
     Indication: HEPATITIS C
     Route: 058
     Dates: start: 20110809
  3. INCIVEK [Suspect]
     Indication: HEPATITIS C
     Route: 048
     Dates: start: 20110809
  4. RIBAVIRIN [Concomitant]
     Indication: HEPATITIS C
     Route: 048
     Dates: start: 20110809

REACTIONS (2)
  - PULMONARY HAEMORRHAGE [None]
  - GASTROINTESTINAL HAEMORRHAGE [None]
